FAERS Safety Report 5307756-4 (Version None)
Quarter: 2007Q2

REPORT INFORMATION
  Report Type: 
  Country: None (occurrence: None)
  Receive Date: 20070418
  Receipt Date: 20070412
  Transmission Date: 20071010
  Serious: Yes (Hospitalization)
  Sender: FDA-Public Use
  Company Number: 2007SP006783

PATIENT
  Age: 56 Year
  Sex: Female
  Weight: 67.7 kg

DRUGS (4)
  1. PEG-INTRON [Suspect]
     Indication: HEPATITIS C
     Dosage: 96 MCG; QW;SC
     Route: 058
     Dates: start: 20070215, end: 20070404
  2. REBETOL [Suspect]
     Indication: HEPATITIS C
     Dosage: 1000 MG; QD; SC
     Route: 058
     Dates: start: 20070215, end: 20070412
  3. PROCRIT [Suspect]
     Indication: DRUG USE FOR UNKNOWN INDICATION
     Dosage: 40000 IU; QW; SC
     Route: 058
     Dates: start: 20070323, end: 20070405
  4. CIPRO [Concomitant]

REACTIONS (2)
  - HYPONATRAEMIA [None]
  - PERITONITIS BACTERIAL [None]
